FAERS Safety Report 5852370-5 (Version None)
Quarter: 2008Q3

REPORT INFORMATION
  Report Type: 
  Country: None (occurrence: None)
  Receive Date: 20080820
  Receipt Date: 20080820
  Transmission Date: 20090109
  Serious: No
  Sender: FDA-Public Use
  Company Number: None

PATIENT
  Age: 77 Year
  Sex: Female

DRUGS (1)
  1. ALENDRONATE SODIUM [Suspect]
     Indication: OSTEOPOROSIS
     Dosage: TAKE 1 TABLET EVERY WEEK

REACTIONS (5)
  - ACNE [None]
  - ARTHRALGIA [None]
  - EYE PRURITUS [None]
  - FORMICATION [None]
  - PRURITUS [None]
